FAERS Safety Report 10633928 (Version 4)
Quarter: 2015Q1

REPORT INFORMATION
  Report Type: Spontaneous
  Country: JP (occurrence: JP)
  Receive Date: 20141205
  Receipt Date: 20150324
  Transmission Date: 20150720
  Serious: Yes (Other)
  Sender: FDA-Public Use
  Company Number: JP-009507513-1412JPN002980

PATIENT
  Age: 45 Year
  Sex: Female

DRUGS (33)
  1. MIANSERIN HYDROCHLORIDE [Concomitant]
     Active Substance: MIANSERIN HYDROCHLORIDE
     Indication: INSOMNIA
     Dosage: 60 MG, QD
     Route: 048
     Dates: start: 20130628
  2. MIANSERIN HYDROCHLORIDE [Concomitant]
     Active Substance: MIANSERIN HYDROCHLORIDE
     Indication: PRODUCT USED FOR UNKNOWN INDICATION
     Dosage: 30 MG, QD
     Route: 048
     Dates: start: 20130906, end: 20130918
  3. MIANSERIN HYDROCHLORIDE [Concomitant]
     Active Substance: MIANSERIN HYDROCHLORIDE
     Dosage: 60 MG, QD
     Route: 048
     Dates: start: 20130918, end: 20140207
  4. CLONAZEPAM. [Concomitant]
     Active Substance: CLONAZEPAM
     Indication: INSOMNIA
     Dosage: 2 MG, QD
     Route: 048
     Dates: start: 20130906
  5. LORAZEPAM. [Concomitant]
     Active Substance: LORAZEPAM
     Indication: IRRITABILITY
     Dosage: 2 MG, QD
     Route: 048
     Dates: start: 20130628
  6. QUETIAPINE FUMARATE. [Concomitant]
     Active Substance: QUETIAPINE FUMARATE
     Indication: INSOMNIA
     Dosage: 200 MG, QD
     Route: 048
     Dates: start: 20130614, end: 20130620
  7. REFLEX [Suspect]
     Active Substance: MIRTAZAPINE
     Dosage: 30 MG, QD
     Route: 048
     Dates: end: 20130604
  8. REFLEX [Suspect]
     Active Substance: MIRTAZAPINE
     Dosage: 15 MG, QD
     Route: 048
     Dates: start: 20140224, end: 20140407
  9. BLONANSERIN [Concomitant]
     Active Substance: BLONANSERIN
     Indication: FEELING OF RELAXATION
     Dosage: 4 MG, QD
     Route: 048
     Dates: start: 20130918, end: 20140207
  10. RILMAZAFONE HYDROCHLORIDE [Concomitant]
     Active Substance: RILMAZAFONE HYDROCHLORIDE
     Indication: ANXIETY
     Dosage: 2 MG, QD
     Route: 048
     Dates: start: 20130605, end: 20130613
  11. REFLEX [Suspect]
     Active Substance: MIRTAZAPINE
     Indication: DEPRESSION
     Dosage: 15 MG, QD
     Route: 048
     Dates: start: 20100122
  12. REFLEX [Suspect]
     Active Substance: MIRTAZAPINE
     Dosage: 45 MG, QD
     Route: 048
     Dates: start: 20130605, end: 20130613
  13. BLONANSERIN [Concomitant]
     Active Substance: BLONANSERIN
     Indication: SEDATION
     Dosage: 4 MG, QD
     Route: 048
     Dates: end: 20140611
  14. LORAZEPAM. [Concomitant]
     Active Substance: LORAZEPAM
     Indication: ANXIETY
     Dosage: 1 MG, QD
     Route: 048
     Dates: start: 20130614, end: 20130627
  15. LORAZEPAM. [Concomitant]
     Active Substance: LORAZEPAM
     Indication: INSOMNIA
  16. LORMETAZEPAM [Concomitant]
     Active Substance: LORMETAZEPAM
     Indication: INSOMNIA
     Dosage: 2 MG, QD
     Route: 048
     Dates: start: 20130605, end: 20130613
  17. LEVOMEPROMAZINE MALEATE [Concomitant]
     Active Substance: LEVOMEPROMAZINE MALEATE
     Indication: ANXIETY
     Dosage: 25 MG, QD
     Route: 048
     Dates: start: 20130614, end: 20130620
  18. ETIZOLAM [Concomitant]
     Active Substance: ETIZOLAM
     Indication: INSOMNIA
     Dosage: 2 MG, QD
     Route: 048
     Dates: start: 20130614, end: 20130627
  19. ETIZOLAM [Concomitant]
     Active Substance: ETIZOLAM
     Dosage: 3 MG, QD
     Route: 048
     Dates: start: 20130628
  20. RAMELTEON [Concomitant]
     Active Substance: RAMELTEON
     Indication: INSOMNIA
     Dosage: 8 MG, QD
     Route: 048
     Dates: start: 20130906, end: 20140207
  21. ETHYL LOFLAZEPATE [Concomitant]
     Active Substance: ETHYL LOFLAZEPATE
  22. RILMAZAFONE HYDROCHLORIDE [Concomitant]
     Active Substance: RILMAZAFONE HYDROCHLORIDE
     Indication: IRRITABILITY
  23. REFLEX [Suspect]
     Active Substance: MIRTAZAPINE
     Dosage: 30 MG, QD
     Route: 048
     Dates: start: 20130614, end: 20130627
  24. REFLEX [Suspect]
     Active Substance: MIRTAZAPINE
     Dosage: 45 MG,QD
     Route: 048
     Dates: start: 20130628, end: 20140223
  25. BLONANSERIN [Concomitant]
     Active Substance: BLONANSERIN
     Dosage: 2 MG, QD
     Route: 048
     Dates: start: 20140214, end: 20140611
  26. MIANSERIN HYDROCHLORIDE [Concomitant]
     Active Substance: MIANSERIN HYDROCHLORIDE
     Dosage: 30 MG,QD
     Route: 048
     Dates: end: 20140616
  27. QUETIAPINE FUMARATE. [Concomitant]
     Active Substance: QUETIAPINE FUMARATE
     Indication: IRRITABILITY
     Dosage: 600 MG, QD
     Route: 048
     Dates: start: 20130605, end: 20130613
  28. LEVOMEPROMAZINE MALEATE [Concomitant]
     Active Substance: LEVOMEPROMAZINE MALEATE
     Indication: IRRITABILITY
  29. TRIAZOLAM. [Concomitant]
     Active Substance: TRIAZOLAM
     Indication: INSOMNIA
     Dosage: 0.5 MG, QD
     Route: 048
     Dates: start: 20130710
  30. ESTAZOLAM. [Concomitant]
     Active Substance: ESTAZOLAM
     Indication: INSOMNIA
     Dosage: 2 MG, QD
     Route: 048
     Dates: start: 20130614, end: 20130620
  31. BLONANSERIN [Concomitant]
     Active Substance: BLONANSERIN
     Dosage: 4 MG, QD
     Route: 048
     Dates: start: 20140616, end: 20140627
  32. BLONANSERIN [Concomitant]
     Active Substance: BLONANSERIN
     Dosage: 8 MG, QD
     Route: 048
     Dates: start: 20140616, end: 20140708
  33. MIANSERIN HYDROCHLORIDE [Concomitant]
     Active Substance: MIANSERIN HYDROCHLORIDE
     Indication: DEPRESSION
     Dosage: 30 MG, QD
     Route: 048
     Dates: start: 20130614, end: 20130627

REACTIONS (1)
  - Aggression [Unknown]

NARRATIVE: CASE EVENT DATE: 20140207
